FAERS Safety Report 5870038-6 (Version None)
Quarter: 2008Q3

REPORT INFORMATION
  Report Type: 
  Country: None (occurrence: None)
  Receive Date: 20080904
  Receipt Date: 20080619
  Transmission Date: 20090109
  Serious: No
  Sender: FDA-Public Use
  Company Number: US-BAYER-200826806NA

PATIENT
  Age: 27 Year
  Sex: Female

DRUGS (2)
  1. MIRENA [Suspect]
     Indication: CONTRACEPTION
     Route: 015
     Dates: start: 20021001, end: 20071001
  2. MIRENA [Suspect]
     Route: 015
     Dates: start: 20071001, end: 20080505

REACTIONS (8)
  - ALOPECIA [None]
  - DEPRESSION [None]
  - LIBIDO DECREASED [None]
  - MENSTRUATION IRREGULAR [None]
  - MOOD ALTERED [None]
  - PROCEDURAL PAIN [None]
  - VAGINITIS BACTERIAL [None]
  - WEIGHT INCREASED [None]
